FAERS Safety Report 5718566-8 (Version None)
Quarter: 2008Q2

REPORT INFORMATION
  Report Type: 
  Country: None (occurrence: None)
  Receive Date: 20080425
  Receipt Date: 20080414
  Transmission Date: 20081010
  Serious: Yes (Hospitalization, Other)
  Sender: FDA-Public Use
  Company Number: US-PFIZER INC-2008013498

PATIENT
  Sex: Female
  Weight: 113 kg

DRUGS (10)
  1. LYRICA [Suspect]
     Indication: FIBROMYALGIA
     Dates: start: 20071201, end: 20080101
  2. LYRICA [Suspect]
     Indication: INTERVERTEBRAL DISC DEGENERATION
  3. LYRICA [Suspect]
     Indication: NERVE INJURY
  4. MORPHINE [Concomitant]
  5. CLONAZEPAM [Concomitant]
  6. TRAMADOL HCL [Concomitant]
  7. SEROQUEL [Concomitant]
  8. TIZANIDINE HCL [Concomitant]
  9. VALTREX [Concomitant]
  10. METOCLOPRAMIDE [Concomitant]

REACTIONS (5)
  - ACTIVITIES OF DAILY LIVING IMPAIRED [None]
  - AMNESIA [None]
  - HALLUCINATION [None]
  - HEAD INJURY [None]
  - INJURY [None]
